FAERS Safety Report 4591014-X (Version None)
Quarter: 2005Q1

REPORT INFORMATION
  Report Type: 
  Country: None (occurrence: None)
  Receive Date: 20050225
  Receipt Date: 20041025
  Transmission Date: 20050727
  Serious: Yes (Death, Hospitalization)
  Sender: FDA-Public Use
  Company Number: US-NOVOPROD-240077

PATIENT
  Age: 18 Year
  Sex: Male
  Weight: 85 kg

DRUGS (2)
  1. NOVOSEVEN [Suspect]
     Indication: INJURY
     Dosage: 1 AMPULE - DOSE UNKNOWN
     Route: 042
     Dates: start: 20041003, end: 20041003
  2. NOVOSEVEN [Suspect]
     Dosage: 1 AMPULE - DOSE UNKNOWN
     Route: 042
     Dates: start: 20041003, end: 20041003

REACTIONS (2)
  - ACUTE RESPIRATORY DISTRESS SYNDROME [None]
  - RESPIRATORY FAILURE [None]
